FAERS Safety Report 16215261 (Version 1)
Quarter: 2019Q2

REPORT INFORMATION
  Report Type: Report from Study
  Country: None (occurrence: BR)
  Receive Date: 20190419
  Receipt Date: 20190419
  Transmission Date: 20190711
  Serious: Yes (Death, Hospitalization, Other)
  Sender: FDA-Public Use
  Company Number: BR-ABBVIE-19K-020-2748657-00

PATIENT
  Sex: Male
  Weight: 105 kg

DRUGS (3)
  1. FOLIC ACID. [Concomitant]
     Active Substance: FOLIC ACID
     Indication: PRODUCT USED FOR UNKNOWN INDICATION
  2. HUMIRA [Suspect]
     Active Substance: ADALIMUMAB
     Indication: RHEUMATOID ARTHRITIS
     Route: 058
  3. TECNOMET [Concomitant]
     Active Substance: METHOTREXATE
     Indication: PRODUCT USED FOR UNKNOWN INDICATION
     Dosage: 3 AT MONDAYS AND 3 AT TUESDAY

REACTIONS (16)
  - Gingivitis [Unknown]
  - Nausea [Unknown]
  - Malaise [Unknown]
  - Fluid retention [Unknown]
  - Renal failure [Unknown]
  - Gastric disorder [Not Recovered/Not Resolved]
  - Tooth extraction [Unknown]
  - Bacterial infection [Fatal]
  - Gastrointestinal inflammation [Unknown]
  - Systemic lupus erythematosus [Unknown]
  - Arthralgia [Unknown]
  - Dyspnoea [Unknown]
  - Gallbladder disorder [Not Recovered/Not Resolved]
  - Lung disorder [Not Recovered/Not Resolved]
  - Pyuria [Unknown]
  - Musculoskeletal chest pain [Recovered/Resolved]

NARRATIVE: CASE EVENT DATE: 201812
